FAERS Safety Report 21372121 (Version 1)
Quarter: 2022Q3

REPORT INFORMATION
  Report Type: Spontaneous
  Country: FI (occurrence: FI)
  Receive Date: 20220923
  Receipt Date: 20220923
  Transmission Date: 20221026
  Serious: Yes (Disabling)
  Sender: FDA-Public Use
  Company Number: None

PATIENT
  Sex: Female

DRUGS (1)
  1. BOTOX [Suspect]
     Active Substance: ONABOTULINUMTOXINA
     Indication: Meige^s syndrome
     Dosage: UNK UNK, SINGLE

REACTIONS (4)
  - Retrognathia [Recovered/Resolved with Sequelae]
  - Tooth injury [Recovered/Resolved with Sequelae]
  - Osteoarthritis [Recovered/Resolved with Sequelae]
  - Malocclusion [Recovered/Resolved with Sequelae]

NARRATIVE: CASE EVENT DATE: 20120101
